FAERS Safety Report 5576456-8 (Version None)
Quarter: 2007Q4

REPORT INFORMATION
  Report Type: 
  Country: None (occurrence: None)
  Receive Date: 20071228
  Receipt Date: 20071226
  Transmission Date: 20080405
  Serious: Yes (Disabling, Other)
  Sender: FDA-Public Use
  Company Number: FR-ASTRAZENECA-2007CG01828

PATIENT
  Age: 74 Year
  Sex: Male

DRUGS (3)
  1. LIDOCAINE 2% [Suspect]
     Indication: CATARACT OPERATION
     Route: 053
  2. BUPIVACAINE [Suspect]
     Indication: CATARACT OPERATION
     Route: 053
  3. PROPOFOL [Concomitant]
     Indication: SEDATION
     Route: 042

REACTIONS (1)
  - DIPLOPIA [None]
